FAERS Safety Report 8208158-3 (Version None)
Quarter: 2012Q1

REPORT INFORMATION
  Report Type: 
  Country: None (occurrence: None)
  Receive Date: 20120314
  Receipt Date: 20120307
  Transmission Date: 20120608
  Serious: Yes (Hospitalization, Other)
  Sender: FDA-Public Use
  Company Number: PHHY2012FR020541

PATIENT
  Sex: Male

DRUGS (4)
  1. REPAGLINIDE [Suspect]
     Indication: TYPE 2 DIABETES MELLITUS
     Dosage: 1 DF,
     Dates: end: 20110218
  2. VASTAREL [Concomitant]
     Dosage: 70 MG, PER DAY
  3. VALSARTAN  AND HYDROCHLOROTHIAZIDE [Suspect]
     Indication: HYPERTENSION
     Dosage: UNK
     Dates: end: 20110218
  4. METFORMIN HCL [Suspect]
     Indication: TYPE 2 DIABETES MELLITUS
     Dosage: UNK
     Route: 048
     Dates: end: 20110218

REACTIONS (8)
  - BLOOD CREATININE INCREASED [None]
  - HAEMORRHAGE [None]
  - SOMNOLENCE [None]
  - RENAL FAILURE ACUTE [None]
  - HYPERKALAEMIA [None]
  - HYPOTENSION [None]
  - FALL [None]
  - HYPOTHERMIA [None]
